FAERS Safety Report 5368153-9 (Version None)
Quarter: 2007Q2

REPORT INFORMATION
  Report Type: 
  Country: None (occurrence: None)
  Receive Date: 20070620
  Receipt Date: 20070610
  Transmission Date: 20071010
  Serious: Yes (Other)
  Sender: FDA-Public Use
  Company Number: 2007SP011860

PATIENT
  Sex: Male

DRUGS (1)
  1. CLARITIN-D 24 HOUR [Suspect]
     Indication: SEASONAL ALLERGY
     Dosage: PO
     Route: 048
     Dates: start: 20070609

REACTIONS (2)
  - DYSPNOEA [None]
  - THROAT TIGHTNESS [None]
